FAERS Safety Report 11382525 (Version 1)
Quarter: 2015Q3

REPORT INFORMATION
  Report Type: Spontaneous
  Country: US (occurrence: US)
  Receive Date: 20150811
  Receipt Date: 20150811
  Transmission Date: 20151125
  Serious: No
  Sender: FDA-Public Use
  Company Number: US-ELI_LILLY_AND_COMPANY-US200908004401

PATIENT
  Sex: Male

DRUGS (7)
  1. CIALIS [Suspect]
     Active Substance: TADALAFIL
     Dosage: 20 MG, UNKNOWN
     Route: 065
     Dates: start: 20090325
  2. COREG [Concomitant]
     Active Substance: CARVEDILOL
     Dosage: UNK, UNKNOWN
     Route: 065
  3. BABY ASPIRIN [Concomitant]
     Active Substance: ASPIRIN
     Dosage: UNK, UNKNOWN
     Route: 065
  4. LIPITOR [Concomitant]
     Active Substance: ATORVASTATIN CALCIUM
     Dosage: UNK, UNKNOWN
     Route: 065
  5. LEVOTHYROXINE. [Concomitant]
     Active Substance: LEVOTHYROXINE
     Dosage: UNK, UNKNOWN
     Route: 065
  6. FLOMAX [Concomitant]
     Active Substance: TAMSULOSIN HYDROCHLORIDE
     Dosage: UNK, UNKNOWN
     Route: 065
  7. OMEPRAZOLE. [Concomitant]
     Active Substance: OMEPRAZOLE
     Dosage: UNK, UNKNOWN
     Route: 065

REACTIONS (2)
  - Therapeutic response delayed [Recovered/Resolved]
  - Therapeutic response decreased [Recovered/Resolved]

NARRATIVE: CASE EVENT DATE: 200907
